FAERS Safety Report 15147532 (Version 2)
Quarter: 2019Q2

REPORT INFORMATION
  Report Type: Spontaneous
  Country: NZ (occurrence: NZ)
  Receive Date: 20180716
  Receipt Date: 20190404
  Transmission Date: 20190711
  Serious: Yes (Death, Life-Threatening, Other)
  Sender: FDA-Public Use
  Company Number: NZ-ACCORD-069443

PATIENT
  Age: 5 Month
  Sex: Male

DRUGS (5)
  1. METHYLPREDNISOLONE. [Suspect]
     Active Substance: METHYLPREDNISOLONE
     Indication: IMMUNOSUPPRESSANT DRUG THERAPY
  2. TACROLIMUS. [Suspect]
     Active Substance: TACROLIMUS
     Indication: IMMUNOSUPPRESSANT DRUG THERAPY
  3. GENTAMICIN. [Concomitant]
     Active Substance: GENTAMICIN
     Indication: CHOLANGITIS
     Route: 042
  4. AMOXICILLIN. [Concomitant]
     Active Substance: AMOXICILLIN
     Indication: CHOLANGITIS
     Route: 042
  5. AMPHOTERICIN B. [Concomitant]
     Active Substance: AMPHOTERICIN B
     Indication: PROPHYLAXIS
     Dosage: LIPOSOMAL

REACTIONS (2)
  - Condition aggravated [Fatal]
  - Hyperammonaemia [Fatal]
